FAERS Safety Report 6493525-9 (Version None)
Quarter: 2009Q4

REPORT INFORMATION
  Report Type: 
  Country: None (occurrence: None)
  Receive Date: 20091211
  Receipt Date: 20091211
  Transmission Date: 20100525
  Serious: Yes (Other)
  Sender: FDA-Public Use
  Company Number: None

PATIENT
  Age: 47 Year
  Sex: Female
  Weight: 77.5651 kg

DRUGS (1)
  1. NEXIUM [Suspect]
     Indication: GASTROOESOPHAGEAL REFLUX DISEASE
     Dosage: 1 PILL 20 MG ONCE A DAY PO
     Route: 048
     Dates: start: 20070316, end: 20091023

REACTIONS (3)
  - DRUG DOSE OMISSION [None]
  - DYSPEPSIA [None]
  - ECONOMIC PROBLEM [None]
